FAERS Safety Report 9797453 (Version 1)
Quarter: 2014Q1

REPORT INFORMATION
  Report Type: Spontaneous
  Country: US (occurrence: US)
  Receive Date: 20140106
  Receipt Date: 20140106
  Transmission Date: 20141002
  Serious: Yes (Other)
  Sender: FDA-Public Use
  Company Number: PHHY2013US152261

PATIENT
  Age: 83 Year
  Sex: Female

DRUGS (1)
  1. PROPRANOLOL [Suspect]
     Indication: HYPERTENSION
     Dosage: 100 MG DAILY FOR 5 YEARS

REACTIONS (6)
  - Telangiectasia [Recovered/Resolved]
  - Erythema annulare [Recovered/Resolved]
  - Skin discolouration [Recovered/Resolved]
  - Skin hyperpigmentation [Recovered/Resolved]
  - Skin plaque [Recovered/Resolved]
  - Angiopathy [Recovered/Resolved]
